FAERS Safety Report 15588050 (Version 1)
Quarter: 2018Q4

REPORT INFORMATION
  Report Type: Spontaneous
  Country: JP (occurrence: JP)
  Receive Date: 20181105
  Receipt Date: 20181105
  Transmission Date: 20190205
  Serious: Yes (Hospitalization, Other)
  Sender: FDA-Public Use
  Company Number: JP-BAUSCH-SYM-2014-21719

PATIENT
  Age: 50 Year
  Sex: Male

DRUGS (6)
  1. TRAZODONE [Suspect]
     Active Substance: TRAZODONE HYDROCHLORIDE
     Indication: SUICIDE ATTEMPT
     Route: 065
  2. SELEGILINE [Suspect]
     Active Substance: SELEGILINE
     Indication: DEPRESSION
     Route: 065
     Dates: start: 200505
  3. SODIUM VALPROATE [Suspect]
     Active Substance: VALPROATE SODIUM
     Indication: SUICIDE ATTEMPT
     Dosage: SUSTAINED PREPARATION
     Route: 065
  4. NITRAZEPAM [Suspect]
     Active Substance: NITRAZEPAM
     Indication: SUICIDE ATTEMPT
     Route: 065
  5. CARBAMAZEPINE. [Suspect]
     Active Substance: CARBAMAZEPINE
     Indication: SUICIDE ATTEMPT
     Route: 065
  6. SELEGILINE [Suspect]
     Active Substance: SELEGILINE
     Indication: SUICIDE ATTEMPT
     Dosage: OVER DOSE
     Route: 065
     Dates: start: 201011

REACTIONS (6)
  - Generalised tonic-clonic seizure [Recovering/Resolving]
  - Drug effect incomplete [Unknown]
  - Coma [Recovered/Resolved]
  - Hallucination, visual [Recovered/Resolved]
  - Blood pressure increased [Unknown]
  - Intentional overdose [Unknown]

NARRATIVE: CASE EVENT DATE: 2010
